FAERS Safety Report 7440716-6 (Version None)
Quarter: 2011Q2

REPORT INFORMATION
  Report Type: 
  Country: None (occurrence: None)
  Receive Date: 20110427
  Receipt Date: 20110413
  Transmission Date: 20111010
  Serious: Yes (Hospitalization)
  Sender: FDA-Public Use
  Company Number: FR-CELGENEUS-056-21880-08071711

PATIENT
  Sex: Female
  Weight: 47 kg

DRUGS (16)
  1. REVLIMID [Suspect]
     Dosage: 30 MILLIGRAM
     Route: 048
     Dates: start: 20080619, end: 20080717
  2. FUNGIZONE [Concomitant]
     Route: 002
  3. REVLIMID [Suspect]
     Dosage: 20 MILLIGRAM
     Route: 048
     Dates: start: 20080217, end: 20080618
  4. ARANESP [Concomitant]
     Dosage: 1.3333 MICROGRAM
     Route: 065
  5. STILNOX [Concomitant]
     Route: 048
  6. REVLIMID [Suspect]
     Indication: MYELOMA RECURRENCE
     Route: 048
     Dates: start: 20071201
  7. REVLIMID [Suspect]
     Dosage: 2.8571 MILLIGRAM
     Route: 048
     Dates: start: 20100501
  8. DEXAMETHASONE [Concomitant]
     Indication: MULTIPLE MYELOMA
     Dosage: 20 MILLIGRAM
     Route: 065
     Dates: start: 20071201
  9. CINACALCET HYDROCHLORIDE [Concomitant]
     Dosage: 30 MILLIGRAM
     Route: 065
     Dates: start: 20080626
  10. KAYEXALATE [Concomitant]
     Route: 065
  11. STEROGYL [Concomitant]
  12. ZOMETA [Concomitant]
     Indication: OSTEOPOROSIS
     Dosage: .1333 MILLIGRAM
     Route: 051
     Dates: start: 20080324, end: 20080616
  13. MOPRAL [Concomitant]
     Dosage: 20 GRAM
     Route: 065
  14. UN-ALFA [Concomitant]
     Route: 065
  15. CALCIDIA [Concomitant]
     Route: 065
  16. ZELITREX [Concomitant]
     Route: 048

REACTIONS (4)
  - RENAL FAILURE ACUTE [None]
  - FANCONI SYNDROME ACQUIRED [None]
  - THROMBOCYTOPENIA [None]
  - ANAEMIA [None]
